FAERS Safety Report 14154579 (Version 2)
Quarter: 2017Q4

REPORT INFORMATION
  Report Type: Report from Study
  Country: US (occurrence: US)
  Receive Date: 20171102
  Receipt Date: 20171130
  Transmission Date: 20180321
  Serious: Yes (Death, Hospitalization)
  Sender: FDA-Public Use
  Company Number: US-ACTELION-A-US2016-129995

PATIENT
  Age: 72 Year
  Sex: Male
  Weight: 93.42 kg

DRUGS (3)
  1. SILDENAFIL. [Concomitant]
     Active Substance: SILDENAFIL
  2. TRACLEER [Suspect]
     Active Substance: BOSENTAN
     Indication: PULMONARY ARTERIAL HYPERTENSION
     Dosage: 62.5 MG, BID
     Route: 048
     Dates: start: 20150831
  3. TRACLEER [Suspect]
     Active Substance: BOSENTAN
     Dosage: 125 MG, BID
     Route: 048
     Dates: start: 20150831

REACTIONS (18)
  - Pulmonary hypertension [Fatal]
  - Cardiac failure congestive [Fatal]
  - Abdominal pain [Unknown]
  - Constipation [Unknown]
  - Drug administration error [Unknown]
  - Cyst removal [Unknown]
  - Oxygen therapy [Fatal]
  - Pneumonia [Unknown]
  - Infection [Unknown]
  - Coronary artery disease [Fatal]
  - Lung infection [Unknown]
  - Faeces hard [Unknown]
  - Chronic obstructive pulmonary disease [Fatal]
  - Chromaturia [Unknown]
  - Nasopharyngitis [Unknown]
  - Chronic kidney disease [Fatal]
  - Disease progression [Fatal]
  - Confusional state [Unknown]
